FAERS Safety Report 7239319-8 (Version None)
Quarter: 2011Q1

REPORT INFORMATION
  Report Type: 
  Country: None (occurrence: None)
  Receive Date: 20110121
  Receipt Date: 20110120
  Transmission Date: 20110831
  Serious: Yes (Other)
  Sender: FDA-Public Use
  Company Number: CN-PFIZER INC-2010115070

PATIENT
  Age: 70 Year
  Sex: Male

DRUGS (3)
  1. WARFARIN [Interacting]
     Indication: ANTICOAGULANT THERAPY
     Dosage: 2.5 G, 1X/DAY
  2. HEPARIN [Concomitant]
     Dosage: 4 UG/KG MIN, UNK
  3. CEFOPERAZONE SODIUM, SULBACTAM SODIUM [Suspect]
     Indication: INFECTION PROPHYLAXIS
     Dosage: 2.0 G, 3X/DAY
     Route: 042

REACTIONS (2)
  - COAGULATION TIME PROLONGED [None]
  - DRUG INTERACTION [None]
